FAERS Safety Report 5202371-5 (Version None)
Quarter: 2007Q1

REPORT INFORMATION
  Report Type: 
  Country: None (occurrence: None)
  Receive Date: 20070109
  Receipt Date: 20070102
  Transmission Date: 20070707
  Serious: Yes (Life-Threatening, Hospitalization)
  Sender: FDA-Public Use
  Company Number: PHRM2006FR03112

PATIENT
  Age: 58 Year
  Sex: Female
  Weight: 68 kg

DRUGS (11)
  1. GLEEVEC [Suspect]
     Indication: ACUTE LYMPHOCYTIC LEUKAEMIA
     Dosage: 400 MG, BID
     Route: 048
     Dates: start: 20061107, end: 20061117
  2. EVISTA [Concomitant]
     Dates: start: 20060501
  3. METHOTREXATE [Suspect]
     Indication: ACUTE LYMPHOCYTIC LEUKAEMIA
     Dosage: 15 MG DAILY
     Route: 037
     Dates: start: 20061107, end: 20061117
  4. CYTARABINE [Suspect]
     Indication: ACUTE LYMPHOCYTIC LEUKAEMIA
     Dosage: 40 MG DAILY
     Dates: start: 20061107, end: 20061117
  5. DEPO-MEDROL [Suspect]
     Indication: ACUTE LYMPHOCYTIC LEUKAEMIA
     Dosage: AT DAY 1 AND DAY 8
  6. LEXOMIL [Concomitant]
     Indication: DEPRESSION
  7. PAROXETINE HCL [Concomitant]
     Indication: DEPRESSION
  8. ANAFRANIL [Suspect]
     Indication: DEPRESSION
  9. ABUFENE [Concomitant]
  10. LEVOTHYROXINE SODIUM [Concomitant]
  11. HYPERICUM [Concomitant]

REACTIONS (15)
  - AREFLEXIA [None]
  - BRAIN OEDEMA [None]
  - COGNITIVE DISORDER [None]
  - COMPUTERISED TOMOGRAM ABNORMAL [None]
  - DISORIENTATION [None]
  - GLASGOW COMA SCALE ABNORMAL [None]
  - HEADACHE [None]
  - MENTAL IMPAIRMENT [None]
  - MYDRIASIS [None]
  - NAUSEA [None]
  - SOMNOLENCE [None]
  - SUBDURAL HAEMATOMA [None]
  - SUBDURAL HAEMATOMA EVACUATION [None]
  - THROMBOCYTOPENIA [None]
  - VOMITING [None]
